FAERS Safety Report 4494943-0 (Version None)
Quarter: 2004Q4

REPORT INFORMATION
  Report Type: 
  Country: None (occurrence: None)
  Receive Date: 20041104
  Receipt Date: 20041104
  Transmission Date: 20050328
  Serious: Yes (Other)
  Sender: FDA-Public Use
  Company Number: None

PATIENT
  Age: 42 Year
  Sex: Male
  Weight: 103.4201 kg

DRUGS (1)
  1. TOOTHPASTE [Suspect]

REACTIONS (9)
  - CONVULSION [None]
  - COUGH [None]
  - FATIGUE [None]
  - HYPERSENSITIVITY [None]
  - HYPERTONIC BLADDER [None]
  - NASAL CONGESTION [None]
  - PANIC ATTACK [None]
  - PHARMACEUTICAL PRODUCT COMPLAINT [None]
  - SEASONAL ALLERGY [None]
